FAERS Safety Report 11568007 (Version 1)
Quarter: 2015Q3

REPORT INFORMATION
  Report Type: Spontaneous
  Country: US (occurrence: US)
  Receive Date: 20150916
  Receipt Date: 20150916
  Transmission Date: 20151125
  Serious: No
  Sender: FDA-Public Use
  Company Number: US-ELI_LILLY_AND_COMPANY-US200908001616

PATIENT
  Age: 70 Year
  Sex: Female

DRUGS (13)
  1. METOPROLOL [Concomitant]
     Active Substance: METOPROLOL
  2. FISH OIL [Concomitant]
     Active Substance: FISH OIL
  3. FOLIC ACID. [Concomitant]
     Active Substance: FOLIC ACID
  4. VITAMIN D [Concomitant]
     Active Substance: CHOLECALCIFEROL
  5. MAGNESIUM [Concomitant]
     Active Substance: MAGNESIUM
  6. HEMAX                              /00928302/ [Concomitant]
  7. SYNTHROID [Concomitant]
     Active Substance: LEVOTHYROXINE SODIUM
  8. LOVASTATIN. [Concomitant]
     Active Substance: LOVASTATIN
  9. GABAPENTIN. [Concomitant]
     Active Substance: GABAPENTIN
     Dosage: 1 D/F, 2/D
  10. METFORMIN [Concomitant]
     Active Substance: METFORMIN HYDROCHLORIDE
     Dosage: 5 MG, 2/D
  11. FORTEO [Suspect]
     Active Substance: TERIPARATIDE
     Dosage: UNK, UNK
     Dates: start: 20090626
  12. CALCIUM [Concomitant]
     Active Substance: CALCIUM
  13. BENICAR [Concomitant]
     Active Substance: OLMESARTAN MEDOXOMIL

REACTIONS (2)
  - Pain [Unknown]
  - Gastric dilatation [Recovered/Resolved]

NARRATIVE: CASE EVENT DATE: 200906
